FAERS Safety Report 7834125-5 (Version None)
Quarter: 2011Q4

REPORT INFORMATION
  Report Type: 
  Country: None (occurrence: None)
  Receive Date: 20111024
  Receipt Date: 20111011
  Transmission Date: 20120403
  Serious: Yes (Other)
  Sender: FDA-Public Use
  Company Number: PHHY2011BR91108

PATIENT
  Sex: Female

DRUGS (4)
  1. ASPIRIN [Concomitant]
     Dosage: 1 DF, QD
     Route: 048
  2. DOSTINEX [Concomitant]
     Dosage: 5 DF, QW
     Route: 048
  3. METFORMIN HCL [Concomitant]
     Indication: DIABETES MELLITUS
     Dosage: 850 MG 2 TAB AT LUNCH AND 2 AT DINNER
     Route: 048
  4. SANDOSTATIN LAR [Suspect]
     Indication: ACROMEGALY
     Dosage: 30 MG, QMO

REACTIONS (1)
  - DIABETES MELLITUS INADEQUATE CONTROL [None]
